FAERS Safety Report 4289816-2 (Version None)
Quarter: 2004Q1

REPORT INFORMATION
  Report Type: 
  Country: None (occurrence: None)
  Receive Date: 20040210
  Receipt Date: 20040203
  Transmission Date: 20041129
  Serious: Yes (Hospitalization)
  Sender: FDA-Public Use
  Company Number: US-BRISTOL-MYERS SQUIBB COMPANY-12494662

PATIENT
  Age: 84 Year
  Sex: Male
  Weight: 77 kg

DRUGS (4)
  1. TEQUIN [Suspect]
     Indication: PNEUMONIA
  2. PLAVIX [Suspect]
     Indication: CARDIOVASCULAR DISORDER
     Route: 048
  3. AMARYL [Concomitant]
  4. METOPROLOL [Concomitant]

REACTIONS (1)
  - HAEMORRHAGE [None]
